FAERS Safety Report 6241158-1 (Version None)
Quarter: 2009Q2

REPORT INFORMATION
  Report Type: 
  Country: None (occurrence: None)
  Receive Date: 20090623
  Receipt Date: 20090618
  Transmission Date: 20091009
  Serious: Yes (Hospitalization)
  Sender: FDA-Public Use
  Company Number: IN-BRISTOL-MYERS SQUIBB COMPANY-14672596

PATIENT
  Age: 44 Year
  Sex: Female

DRUGS (5)
  1. EFAVIRENZ [Suspect]
     Indication: HIV INFECTION
     Dosage: 07JUL08-INTERRUPTED. RESTARTED FROM 05MAY09 AND STOPPED ON 17MAY09.
     Route: 048
     Dates: start: 20080707
  2. HEPSERA [Suspect]
     Dates: end: 20090505
  3. VIREAD [Suspect]
     Indication: HIV INFECTION
     Dosage: INTERRUPTED ON 17MAY09
     Route: 048
     Dates: start: 20090505
  4. EMTRICITABINE [Suspect]
     Indication: HIV INFECTION
     Dosage: 09DEC09-INTERRUPTED AND RECEIVED ON 05MAY09 FOR ONE DAY
     Route: 048
     Dates: start: 20081209, end: 20090505
  5. COMBIVIR [Suspect]
     Indication: HIV INFECTION
     Route: 048
     Dates: start: 20080707, end: 20090505

REACTIONS (3)
  - BLOOD LACTIC ACID INCREASED [None]
  - DEHYDRATION [None]
  - GASTROENTERITIS [None]
